FAERS Safety Report 22671500 (Version 2)
Quarter: 2024Q3

REPORT INFORMATION
  Report Type: Spontaneous
  Country: US (occurrence: US)
  Receive Date: 20230705
  Receipt Date: 20240826
  Transmission Date: 20241017
  Serious: Yes (Death, Other)
  Sender: AMGEN
  Company Number: US-AMGEN-USASP2023112175

PATIENT

DRUGS (4)
  1. PREDNISONE [Suspect]
     Active Substance: PREDNISONE
     Indication: Immunosuppression
     Dosage: 5 MILLIGRAM
     Route: 065
  2. FILGRASTIM [Suspect]
     Active Substance: FILGRASTIM
     Indication: Neutropenia
     Dosage: UNK
     Route: 065
  3. TACROLIMUS [Concomitant]
     Active Substance: TACROLIMUS
     Indication: Immunosuppression
     Dosage: UNK
     Route: 065
  4. MYCOPHENOLATE MOFETIL [Concomitant]
     Active Substance: MYCOPHENOLATE MOFETIL
     Indication: Immunosuppression
     Dosage: UNK UNK, BID
     Route: 065

REACTIONS (10)
  - Death [Fatal]
  - Transplant rejection [Unknown]
  - Complications of transplanted lung [Unknown]
  - Pneumonia bacterial [Unknown]
  - Pneumonia fungal [Unknown]
  - Wound infection [Unknown]
  - Bacteraemia [Unknown]
  - Respiratory tract infection viral [Unknown]
  - Cytomegalovirus infection [Unknown]
  - Pneumonia [Unknown]
